FAERS Safety Report 8924413 (Version 2)
Quarter: 2012Q4

REPORT INFORMATION
  Report Type: 
  Country: JP (occurrence: JP)
  Receive Date: 20121126
  Receipt Date: 20121204
  Transmission Date: 20130627
  Serious: Yes (Other)
  Sender: FDA-Public Use
  Company Number: JP-TEVA-371926ISR

PATIENT
  Age: 61 Year
  Sex: Male

DRUGS (5)
  1. CISPLATIN [Suspect]
     Indication: MALIGNANT MELANOMA
     Dates: start: 200711
  2. DACARBAZINE [Suspect]
     Indication: MALIGNANT MELANOMA
     Dates: start: 200711
  3. FERON [Suspect]
     Indication: MALIGNANT MELANOMA
     Dates: start: 200711
  4. NIMUSTINE [Suspect]
     Dates: start: 200711
  5. TAMOXIFEN [Suspect]
     Indication: MALIGNANT MELANOMA
     Dates: start: 200711

REACTIONS (1)
  - Deep vein thrombosis [Unknown]
